FAERS Safety Report 6810492-6 (Version None)
Quarter: 2010Q2

REPORT INFORMATION
  Report Type: 
  Country: None (occurrence: None)
  Receive Date: 20100630
  Receipt Date: 20100621
  Transmission Date: 20101027
  Serious: Yes (Other)
  Sender: FDA-Public Use
  Company Number: US-PFIZER INC-2010051653

PATIENT
  Sex: Female
  Weight: 81.633 kg

DRUGS (5)
  1. CHANTIX [Suspect]
     Indication: SMOKING CESSATION THERAPY
     Dosage: UNK
     Route: 048
     Dates: start: 20100426
  2. CORTISONE [Suspect]
     Indication: PAIN
     Dosage: UNK
     Dates: start: 20100501
  3. INDOCIN [Suspect]
     Indication: PAIN
     Dosage: UNK
  4. LOPRESSOR [Concomitant]
     Indication: HYPERTENSION
     Dosage: 50 MG, 2X/DAY
     Route: 048
  5. LISINOPRIL [Concomitant]
     Indication: HYPERTENSION
     Dosage: 40 MG, 2X/DAY
     Route: 048

REACTIONS (3)
  - FLUID RETENTION [None]
  - MACULAR DEGENERATION [None]
  - WEIGHT INCREASED [None]
